FAERS Safety Report 18900038 (Version 2)
Quarter: 2021Q2

REPORT INFORMATION
  Report Type: Spontaneous
  Country: DE (occurrence: DE)
  Receive Date: 20210216
  Receipt Date: 20210416
  Transmission Date: 20210717
  Serious: Yes (Other)
  Sender: FDA-Public Use
  Company Number: NVSC2021DE030893

PATIENT
  Age: 83 Year
  Sex: Female

DRUGS (5)
  1. CALCIUM [Suspect]
     Active Substance: CALCIUM
     Indication: PRODUCT USED FOR UNKNOWN INDICATION
     Dosage: UNK
     Route: 065
  2. ELIQUIS [Concomitant]
     Active Substance: APIXABAN
     Indication: PRODUCT USED FOR UNKNOWN INDICATION
     Dosage: UNK
     Route: 065
  3. TERIPARATIDE [Suspect]
     Active Substance: TERIPARATIDE
     Indication: OSTEOPOROSIS
     Dosage: UNK, QD (UNK, DAILY) (PEN, DISPOSABLE)
     Route: 058
     Dates: start: 20190528
  4. DEKRISTOL [Suspect]
     Active Substance: CHOLECALCIFEROL
     Indication: PRODUCT USED FOR UNKNOWN INDICATION
     Dosage: UNK
     Route: 065
  5. TILIDINE [Concomitant]
     Active Substance: TILIDINE
     Indication: PAIN
     Dosage: UNK
     Route: 065

REACTIONS (31)
  - Listless [Recovering/Resolving]
  - Arthropathy [Not Recovered/Not Resolved]
  - Spinal fracture [Unknown]
  - Restlessness [Not Recovered/Not Resolved]
  - Monoplegia [Not Recovered/Not Resolved]
  - Pain in extremity [Unknown]
  - Balance disorder [Not Recovered/Not Resolved]
  - Back pain [Recovered/Resolved]
  - Nausea [Not Recovered/Not Resolved]
  - Blood glucose increased [Not Recovered/Not Resolved]
  - Dizziness [Not Recovered/Not Resolved]
  - Muscular weakness [Not Recovered/Not Resolved]
  - Asthenia [Not Recovered/Not Resolved]
  - Insomnia [Unknown]
  - General physical health deterioration [Unknown]
  - Musculoskeletal stiffness [Not Recovered/Not Resolved]
  - Blood calcium increased [Unknown]
  - Tremor [Not Recovered/Not Resolved]
  - Nocturia [Not Recovered/Not Resolved]
  - Fall [Recovered/Resolved]
  - Arthralgia [Not Recovered/Not Resolved]
  - Heart rate irregular [Recovered/Resolved]
  - Myalgia [Not Recovered/Not Resolved]
  - Joint swelling [Recovering/Resolving]
  - Injection site pain [Unknown]
  - Vein disorder [Not Recovered/Not Resolved]
  - Dysstasia [Recovering/Resolving]
  - Sciatica [Not Recovered/Not Resolved]
  - Nervous system disorder [Not Recovered/Not Resolved]
  - Pain [Not Recovered/Not Resolved]
  - Gait disturbance [Recovering/Resolving]

NARRATIVE: CASE EVENT DATE: 20190528
